FAERS Safety Report 11096253 (Version 1)
Quarter: 2015Q2

REPORT INFORMATION
  Report Type: Spontaneous
  Country: US (occurrence: None)
  Receive Date: 20150506
  Receipt Date: 20150506
  Transmission Date: 20150821
  Serious: No
  Sender: FDA-Public Use
  Company Number: None

PATIENT
  Age: 65 Year
  Sex: Female
  Weight: 74.84 kg

DRUGS (8)
  1. SAVELLA [Suspect]
     Active Substance: MILNACIPRAN HYDROCHLORIDE
     Indication: FIBROMYALGIA
     Route: 048
     Dates: end: 20150505
  2. SAVELLA [Suspect]
     Active Substance: MILNACIPRAN HYDROCHLORIDE
     Indication: DEPRESSION
     Route: 048
     Dates: end: 20150505
  3. LISINOPRIL. [Concomitant]
     Active Substance: LISINOPRIL
  4. STYLANE ULTRA [Concomitant]
  5. TRIQMTERENE/HCI [Concomitant]
  6. HYDROCODONE [Concomitant]
     Active Substance: HYDROCODONE
  7. BABY ASPIRIN [Concomitant]
     Active Substance: ASPIRIN
  8. GABEPENTIN [Concomitant]

REACTIONS (3)
  - Ocular hyperaemia [None]
  - Dry eye [None]
  - Vision blurred [None]
